FAERS Safety Report 23708626 (Version 5)
Quarter: 2024Q3

REPORT INFORMATION
  Report Type: Spontaneous
  Country: JP (occurrence: JP)
  Receive Date: 20240404
  Receipt Date: 20240905
  Transmission Date: 20241017
  Serious: Yes (Other)
  Sender: GENMAB
  Company Number: JP-GENMAB-2024-00170AA

PATIENT
  Age: 71 Year
  Sex: Male

DRUGS (14)
  1. EPKINLY [Suspect]
     Active Substance: EPCORITAMAB-BYSP
     Indication: Diffuse large B-cell lymphoma
     Dosage: 0.16 MILLIGRAM, SINGLE
     Route: 058
     Dates: start: 20231227, end: 20231227
  2. EPKINLY [Suspect]
     Active Substance: EPCORITAMAB-BYSP
     Dosage: 0.8 MILLIGRAM, SINGLE
     Route: 058
     Dates: start: 20240104, end: 20240104
  3. EPKINLY [Suspect]
     Active Substance: EPCORITAMAB-BYSP
     Dosage: 0.16 MILLIGRAM, SINGLE
     Route: 065
     Dates: start: 20240201, end: 20240201
  4. EPKINLY [Suspect]
     Active Substance: EPCORITAMAB-BYSP
     Dosage: 0.8 MILLIGRAM, SINGLE
     Route: 065
     Dates: start: 20240208, end: 20240208
  5. EPKINLY [Suspect]
     Active Substance: EPCORITAMAB-BYSP
     Dosage: 48 MILLIGRAM, WEEKLY
     Route: 058
     Dates: start: 20240215, end: 202403
  6. PREDNISOLONE [Concomitant]
     Active Substance: PREDNISOLONE
     Indication: Premedication
     Dosage: 100 MILLIGRAM, AT ADMINISTRATION OF EPKINLY
     Dates: start: 20231227
  7. PREDNISOLONE [Concomitant]
     Active Substance: PREDNISOLONE
     Indication: Tumour flare
     Dosage: 5 MILLIGRAM, AT ADMINISTRATION OF EPKINLY
     Dates: start: 202301
  8. PREDNISOLONE [Concomitant]
     Active Substance: PREDNISOLONE
     Indication: Cytokine release syndrome
     Dosage: TAPERED DOSE (50 MG, 40 MG, 30 MG, 20 MG, AND 5 MG)
     Dates: start: 202301
  9. ATOVAQUONE [Concomitant]
     Active Substance: ATOVAQUONE
     Dosage: 10 MILLILITER, 1X
     Route: 048
  10. ACYCLOVIR [Concomitant]
     Active Substance: ACYCLOVIR
     Dosage: 200 MILLIGRAM, 1T1X
     Route: 048
  11. FAMOTIDINE [Concomitant]
     Active Substance: FAMOTIDINE
     Dosage: 20 MILLIGRAM, 1T1X
     Route: 048
  12. SITAFLOXACIN [Concomitant]
     Active Substance: SITAFLOXACIN
     Dosage: 50 MILLIGRAM, 2T1X
     Route: 048
  13. ACETAMINOPHEN [Concomitant]
     Active Substance: ACETAMINOPHEN
     Dosage: 500 MILLIGRAM, 8T4X
     Route: 048
  14. MAGNESIUM OXIDE [Concomitant]
     Active Substance: MAGNESIUM OXIDE
     Dosage: 330 MILLIGRAM, 1T1X
     Route: 048

REACTIONS (5)
  - Tumour flare [Unknown]
  - Tumour flare [Unknown]
  - Cytokine release syndrome [Recovered/Resolved]
  - Diffuse large B-cell lymphoma [Not Recovered/Not Resolved]
  - Tonsillar neoplasm [Unknown]

NARRATIVE: CASE EVENT DATE: 20240109
